FAERS Safety Report 7458754-6 (Version None)
Quarter: 2011Q2

REPORT INFORMATION
  Report Type: 
  Country: None (occurrence: None)
  Receive Date: 20110504
  Receipt Date: 20110425
  Transmission Date: 20111010
  Serious: Yes (Hospitalization, Other)
  Sender: FDA-Public Use
  Company Number: US-AMGEN-USASP2011021587

PATIENT
  Age: 70 Year
  Sex: Female

DRUGS (2)
  1. METHOTREXATE                       /00113802/ [Concomitant]
     Dates: start: 20020101
  2. ENBREL [Suspect]
     Indication: RHEUMATOID ARTHRITIS
     Dosage: 50 MG, QWK
     Dates: start: 20021112

REACTIONS (14)
  - RETINAL VASCULAR OCCLUSION [None]
  - ABASIA [None]
  - ARTERIOSCLEROSIS [None]
  - HEPATIC LESION [None]
  - MYOCARDIAL INFARCTION [None]
  - BLINDNESS UNILATERAL [None]
  - HYPERTENSION [None]
  - BONE PAIN [None]
  - RETINAL HAEMORRHAGE [None]
  - MUSCULOSKELETAL STIFFNESS [None]
  - ATRIAL FIBRILLATION [None]
  - NECK PAIN [None]
  - ARTHRALGIA [None]
  - PAIN [None]
